FAERS Safety Report 6386836-9 (Version None)
Quarter: 2009Q3

REPORT INFORMATION
  Report Type: 
  Country: None (occurrence: None)
  Receive Date: 20090930
  Receipt Date: 20090930
  Transmission Date: 20100115
  Serious: No
  Sender: FDA-Public Use
  Company Number: None

PATIENT
  Sex: Female
  Weight: 59.8748 kg

DRUGS (2)
  1. CHANTIX [Suspect]
     Indication: TOBACCO ABUSE
     Dosage: 1MG BID PO
     Route: 048
     Dates: start: 20090801, end: 20090905
  2. TRIMOVAX [Concomitant]

REACTIONS (3)
  - AGITATION [None]
  - DEPRESSION [None]
  - IMPAIRED WORK ABILITY [None]
